FAERS Safety Report 5758458-1 (Version None)
Quarter: 2008Q2

REPORT INFORMATION
  Report Type: 
  Country: None (occurrence: None)
  Receive Date: 20080507
  Receipt Date: 20070918
  Transmission Date: 20081010
  Serious: Yes (Hospitalization)
  Sender: FDA-Public Use
  Company Number: 237947K07USA

PATIENT
  Age: 58 Year
  Sex: Male

DRUGS (8)
  1. REBIF [Suspect]
     Indication: MULTIPLE SCLEROSIS
     Dosage: 44 MCG, 3 IN 1 WEEKS, SUBCUTANEOUS
     Route: 058
     Dates: start: 20060807
  2. BACLOFEN [Concomitant]
  3. VALIUM [Concomitant]
  4. AMANTADINE HCL [Concomitant]
  5. GABAPENTIN [Concomitant]
  6. OXYCODONE HCL [Concomitant]
  7. FINASTERIDE [Concomitant]
  8. FLOMAX [Concomitant]

REACTIONS (2)
  - HYPOAESTHESIA [None]
  - MULTIPLE SCLEROSIS RELAPSE [None]
